FAERS Safety Report 9387618 (Version 1)
Quarter: 2013Q2

REPORT INFORMATION
  Report Type: Spontaneous
  Country: BR (occurrence: None)
  Receive Date: 20130624
  Receipt Date: 20130624
  Transmission Date: 20140414
  Serious: Yes (Other)
  Sender: FDA-Public Use
  Company Number: 2013036580

PATIENT
  Sex: Female

DRUGS (1)
  1. IMMUNOGLOBULIN [Suspect]
     Indication: MULTIPLE SCLEROSIS
     Dosage: MONTHLY PULSES

REACTIONS (2)
  - Abortion spontaneous [None]
  - Maternal exposure during pregnancy [None]
